FAERS Safety Report 8604197-9 (Version None)
Quarter: 2012Q3

REPORT INFORMATION
  Report Type: 
  Country: None (occurrence: None)
  Receive Date: 20120820
  Receipt Date: 20120815
  Transmission Date: 20120928
  Serious: No
  Sender: FDA-Public Use
  Company Number: US-PFIZER INC-2012200648

PATIENT
  Age: 73 Year
  Sex: Female
  Weight: 74.83 kg

DRUGS (4)
  1. HYDROCODONE BITARTRATE [Interacting]
     Indication: MIGRAINE
     Dosage: 50 MG, AS NEEDED
  2. SERTRALINE HYDROCHLORIDE [Suspect]
     Indication: MALAISE
     Dosage: 50 MG, DAILY
     Dates: start: 20120808
  3. LASIX [Concomitant]
     Dosage: 40 MG, DAILY
  4. PLAVIX [Concomitant]
     Indication: ANTICOAGULANT THERAPY
     Dosage: 75 MG, DAILY

REACTIONS (5)
  - FEELING ABNORMAL [None]
  - DIZZINESS [None]
  - DRUG INTERACTION [None]
  - MIGRAINE [None]
  - MALAISE [None]
